FAERS Safety Report 14594551 (Version 1)
Quarter: 2018Q1

REPORT INFORMATION
  Report Type: Spontaneous
  Country: US (occurrence: US)
  Receive Date: 20180302
  Receipt Date: 20180302
  Transmission Date: 20180509
  Serious: Yes (Hospitalization, Other)
  Sender: FDA-Public Use
  Company Number: US-ELI_LILLY_AND_COMPANY-US201802008562

PATIENT
  Sex: Female

DRUGS (1)
  1. CYMBALTA [Suspect]
     Active Substance: DULOXETINE HYDROCHLORIDE
     Indication: DEPRESSION
     Dosage: 60 MG, UNKNOWN
     Route: 065

REACTIONS (7)
  - Hyponatraemia [Unknown]
  - Lumbar vertebral fracture [Unknown]
  - Hypokinesia [Unknown]
  - Drug dose omission [Unknown]
  - Atrial fibrillation [Unknown]
  - Panic attack [Unknown]
  - Bone disorder [Unknown]
